FAERS Safety Report 8736865 (Version 6)
Quarter: 2018Q4

REPORT INFORMATION
  Report Type: Spontaneous
  Country: FR (occurrence: FR)
  Receive Date: 20120822
  Receipt Date: 20181128
  Transmission Date: 20190205
  Serious: Yes (Hospitalization, Other)
  Sender: FDA-Public Use
  Company Number: FR-PFIZER INC-2012201658

PATIENT
  Age: 83 Year
  Sex: Female
  Weight: 62 kg

DRUGS (11)
  1. SMECTA [DIOSMECTITE] [Concomitant]
     Dosage: UNK
     Route: 048
  2. PREVISCAN [Concomitant]
     Indication: ATRIAL FIBRILLATION
     Dosage: 15 MG, 2X/DAY
     Route: 048
     Dates: start: 20120622
  3. LASILIX [Suspect]
     Active Substance: FUROSEMIDE
     Indication: HYPERTENSION
     Dosage: 40 MG, 1X/DAY
     Route: 048
  4. LAROXYL [Concomitant]
     Active Substance: AMITRIPTYLINE HYDROCHLORIDE
     Indication: DEPRESSION
     Dosage: 10 GTT, 1X/DAY
     Route: 048
  5. NEBILOX [Concomitant]
     Active Substance: NEBIVOLOL HYDROCHLORIDE
     Dosage: UNK
     Route: 048
  6. AMAREL [Concomitant]
     Active Substance: GLIMEPIRIDE
     Indication: TYPE 2 DIABETES MELLITUS
     Dosage: 1 MG, 1X/DAY
     Route: 048
  7. VELMETIA [Suspect]
     Active Substance: METFORMIN\SITAGLIPTIN
     Indication: TYPE 2 DIABETES MELLITUS
     Dosage: 1 DF, 2X/DAY
     Route: 048
     Dates: start: 201201, end: 20120723
  8. TAHOR [Suspect]
     Active Substance: ATORVASTATIN CALCIUM
     Indication: HYPERCHOLESTEROLAEMIA
     Dosage: 10 MG, 1X/DAY
     Route: 048
  9. COAPROVEL [Suspect]
     Active Substance: HYDROCHLOROTHIAZIDE\IRBESARTAN
     Indication: HYPERTENSION
     Dosage: 1 DF, 1X/DAY
     Route: 048
  10. METEOXANE [PHLOROGLUCINOL;SIMETICONE] [Concomitant]
     Dosage: UNK
     Route: 048
  11. CELLUVISC [CARMELLOSE SODIUM] [Concomitant]
     Dosage: UNK

REACTIONS (11)
  - Acute kidney injury [Recovering/Resolving]
  - Blood glucose decreased [Unknown]
  - Pancreatitis [Recovering/Resolving]
  - Hyperlactacidaemia [Recovered/Resolved]
  - Renal tubular necrosis [Unknown]
  - Blood alkaline phosphatase increased [Not Recovered/Not Resolved]
  - Overdose [Unknown]
  - Cholestasis [Recovering/Resolving]
  - Escherichia infection [Unknown]
  - Gamma-glutamyltransferase increased [Not Recovered/Not Resolved]
  - Chronic kidney disease [Unknown]

NARRATIVE: CASE EVENT DATE: 201207
